FAERS Safety Report 4654521-7 (Version None)
Quarter: 2005Q2

REPORT INFORMATION
  Report Type: 
  Country: None (occurrence: None)
  Receive Date: 20050506
  Receipt Date: 20050218
  Transmission Date: 20051028
  Serious: Yes (Other)
  Sender: FDA-Public Use
  Company Number: PHFR2005GB00962

PATIENT
  Age: 14 Year
  Sex: Male
  Weight: 32 kg

DRUGS (2)
  1. RITALIN [Suspect]
     Indication: ATTENTION DEFICIT/HYPERACTIVITY DISORDER
     Dosage: 40 MG, QD
     Route: 048
     Dates: start: 20040430, end: 20040625
  2. ANTIBIOTICS [Suspect]
     Indication: LOCALISED INFECTION

REACTIONS (2)
  - LOCALISED INFECTION [None]
  - WHITE BLOOD CELL COUNT DECREASED [None]
